FAERS Safety Report 6401045-2 (Version None)
Quarter: 2009Q4

REPORT INFORMATION
  Report Type: 
  Country: None (occurrence: None)
  Receive Date: 20091015
  Receipt Date: 20091006
  Transmission Date: 20100525
  Serious: Yes (Hospitalization)
  Sender: FDA-Public Use
  Company Number: GB-RANBAXY-2009RR-28261

PATIENT
  Sex: Male

DRUGS (10)
  1. ATENOLOL [Suspect]
     Indication: HYPERTENSION
     Dosage: 50 MG, QD
     Route: 048
  2. RAMIPRIL [Suspect]
     Indication: HYPERTENSION
     Dosage: 5 MG, QD
     Route: 048
  3. SEROQUEL [Suspect]
     Indication: PSYCHOTIC DISORDER
     Dosage: 300 MG, BID
     Route: 048
     Dates: start: 20090101
  4. SEROQUEL [Suspect]
     Dosage: 400 MG, QD
     Route: 048
  5. SEROQUEL [Suspect]
     Dosage: 500 MG, QD
     Route: 048
  6. SEROQUEL [Suspect]
     Dosage: 600 MG, UNK
     Route: 048
  7. ASPIRIN [Concomitant]
     Dosage: 75 MG, UNK
     Route: 048
  8. PARACETAMOL [Concomitant]
     Indication: PAIN
     Route: 048
  9. PAROXETINE [Concomitant]
     Indication: DEPRESSED MOOD
     Dosage: 30 MG, UNK
     Route: 048
  10. FLUOXETINE [Concomitant]
     Indication: DEPRESSED MOOD
     Dosage: 30 MG, UNK
     Route: 048

REACTIONS (4)
  - DRUG ADMINISTRATION ERROR [None]
  - HYPOTENSION [None]
  - INCORRECT DOSE ADMINISTERED [None]
  - SYNCOPE [None]
